FAERS Safety Report 7540186-3 (Version None)
Quarter: 2011Q2

REPORT INFORMATION
  Report Type: 
  Country: None (occurrence: None)
  Receive Date: 20110610
  Receipt Date: 20110609
  Transmission Date: 20111010
  Serious: Yes (Death)
  Sender: FDA-Public Use
  Company Number: US-JNJFOC-20110104701

PATIENT
  Sex: Male

DRUGS (1)
  1. FENTANYL [Suspect]
     Indication: PROCEDURAL PAIN
     Route: 062

REACTIONS (3)
  - DEATH [None]
  - INCORRECT DOSE ADMINISTERED [None]
  - OFF LABEL USE [None]
